FAERS Safety Report 9373356 (Version 2)
Quarter: 2013Q3

REPORT INFORMATION
  Report Type: Spontaneous
  Country: DE (occurrence: DE)
  Receive Date: 20130627
  Receipt Date: 20130805
  Transmission Date: 20140515
  Serious: No
  Sender: FDA-Public Use
  Company Number: DE-VIIV HEALTHCARE LIMITED-D0080261A

PATIENT
  Age: 43 Year
  Sex: Male
  Weight: 56 kg

DRUGS (12)
  1. KIVEXA [Suspect]
     Indication: HIV INFECTION
     Route: 048
     Dates: start: 20090917
  2. NEVIRAPINE [Concomitant]
     Route: 065
  3. CALCIUM ACETATE [Concomitant]
     Dosage: 4200MG PER DAY
     Route: 048
  4. CANDESARTAN [Concomitant]
     Dosage: 4MG TWICE PER DAY
     Route: 048
  5. CARVEDILOL [Concomitant]
     Dosage: 3.125MG TWICE PER DAY
     Route: 048
  6. CALCITRIOL [Concomitant]
     Dosage: .25MCG IN THE MORNING
     Route: 048
  7. DREISAVIT [Concomitant]
     Route: 048
  8. JODID [Concomitant]
     Dosage: 200UG IN THE MORNING
     Route: 048
  9. NORVIR [Concomitant]
     Dosage: 100MG PER DAY
     Route: 048
  10. PANTOZOL [Concomitant]
     Dosage: 40MG TWICE PER DAY
     Route: 048
  11. REYATAZ [Concomitant]
     Dosage: 300MG PER DAY
     Route: 048
  12. TIKLYD [Concomitant]
     Route: 048

REACTIONS (1)
  - Prescribed overdose [Unknown]
